FAERS Safety Report 4286846-1 (Version None)
Quarter: 2004Q1

REPORT INFORMATION
  Report Type: 
  Country: None (occurrence: None)
  Receive Date: 20040204
  Receipt Date: 20040123
  Transmission Date: 20041129
  Serious: Yes (Disabling)
  Sender: FDA-Public Use
  Company Number: 2003117503

PATIENT
  Age: 68 Year
  Sex: Male
  Weight: 90 kg

DRUGS (5)
  1. ZARATOR (ATORVASTATIN) [Suspect]
     Indication: MYOCARDIAL ISCHAEMIA
     Dosage: 40 MG (DAILY), ORAL
     Route: 048
     Dates: start: 20010711
  2. BENDROFLUMETHAZIDE (BENDROFLUMETHIAZIDE) [Concomitant]
  3. RAMIPRIL [Concomitant]
  4. AMLODIPINE [Concomitant]
  5. ACETYLSALICYLIC ACID SRT [Concomitant]

REACTIONS (3)
  - MIGRAINE [None]
  - PARAESTHESIA [None]
  - VISUAL DISTURBANCE [None]
